FAERS Safety Report 7268360-4 (Version None)
Quarter: 2011Q1

REPORT INFORMATION
  Report Type: 
  Country: None (occurrence: None)
  Receive Date: 20110121
  Receipt Date: 20110108
  Transmission Date: 20110831
  Serious: Yes (Death)
  Sender: FDA-Public Use
  Company Number: CO-001462

PATIENT
  Age: 8 Year
  Sex: Female

DRUGS (1)
  1. NAGLAZYME [Suspect]
     Indication: MUCOPOLYSACCHARIDOSIS VI
     Dosage: (15 ML 1X/2 WEEKS INTRAVENOUS DRIP)
     Route: 041
     Dates: start: 20100513

REACTIONS (4)
  - PNEUMONIA [None]
  - RESPIRATORY TRACT INFECTION [None]
  - RESPIRATORY ARREST [None]
  - INFLUENZA [None]
